FAERS Safety Report 26047400 (Version 2)
Quarter: 2025Q4

REPORT INFORMATION
  Report Type: Spontaneous
  Country: CN (occurrence: CN)
  Receive Date: 20251114
  Receipt Date: 20251217
  Transmission Date: 20260118
  Serious: Yes (Other)
  Sender: MERCK SHARP & DOHME LLC
  Company Number: CN-009507513-2348053

PATIENT
  Age: 57 Year
  Sex: Female

DRUGS (4)
  1. PEMBROLIZUMAB [Suspect]
     Active Substance: PEMBROLIZUMAB
     Indication: Lung adenocarcinoma stage IV
     Dosage: 6 CYCLES
     Route: 065
     Dates: start: 201912
  2. PEMBROLIZUMAB [Suspect]
     Active Substance: PEMBROLIZUMAB
     Indication: Lung adenocarcinoma stage IV
     Dosage: 11 CYCLES OF MAINTENANCE THERAPY WITH PEMBROLIZUMAB
     Route: 065
     Dates: start: 202005, end: 202102
  3. PACLITAXEL [Suspect]
     Active Substance: PACLITAXEL
     Indication: Lung adenocarcinoma stage IV
     Dosage: TOTAL OF 6 CYCLES
     Route: 065
     Dates: start: 201912
  4. CARBOPLATIN [Suspect]
     Active Substance: CARBOPLATIN
     Indication: Lung adenocarcinoma stage IV
     Dosage: TOTAL OF 6 CYCLES
     Route: 065
     Dates: start: 201912

REACTIONS (3)
  - Cytomegalovirus gastritis [Recovering/Resolving]
  - Cytomegalovirus infection reactivation [Recovering/Resolving]
  - Product use issue [Unknown]

NARRATIVE: CASE EVENT DATE: 20191201
